FAERS Safety Report 8935325 (Version 2)
Quarter: 2013Q1

REPORT INFORMATION
  Report Type: Spontaneous
  Country: US (occurrence: US)
  Receive Date: 20121129
  Receipt Date: 20130111
  Transmission Date: 20140127
  Serious: Yes (Other)
  Sender: FDA-Public Use
  Company Number: US-PFIZER INC-2012296724

PATIENT
  Age: 20 Year
  Sex: Male
  Weight: 54 kg

DRUGS (1)
  1. DEPO-TESTOSTERONE [Suspect]
     Indication: ANDROGEN DEFICIENCY
     Dosage: UNK
     Route: 030
     Dates: start: 20121119, end: 201211

REACTIONS (6)
  - Product quality issue [Unknown]
  - Dyspnoea [Unknown]
  - Paraesthesia [Unknown]
  - Paraesthesia [Unknown]
  - Dizziness [Unknown]
  - Malaise [Unknown]
